FAERS Safety Report 9612650 (Version 1)
Quarter: 2013Q4

REPORT INFORMATION
  Report Type: Spontaneous
  Country: BR (occurrence: BR)
  Receive Date: 20131010
  Receipt Date: 20131010
  Transmission Date: 20140711
  Serious: Yes (Hospitalization, Other)
  Sender: FDA-Public Use
  Company Number: BR-PFIZER INC-2013285920

PATIENT
  Age: 48 Year
  Sex: Female
  Weight: 60 kg

DRUGS (5)
  1. FRONTAL XR [Suspect]
     Indication: PANIC DISORDER WITH AGORAPHOBIA
     Dosage: UNK
     Route: 048
     Dates: start: 2006
  2. FRONTAL XR [Suspect]
     Dosage: STRENGTH 1 MG UNK
     Route: 048
     Dates: end: 201212
  3. ALPRAZOLAM [Suspect]
     Indication: PANIC DISORDER WITH AGORAPHOBIA
     Dosage: UNK
     Route: 048
  4. PROCIMAX [Concomitant]
     Indication: ANXIETY
     Dosage: UNK
     Dates: start: 2006
  5. RIVOTRIL SL [Concomitant]
     Indication: RELAXATION THERAPY
     Dosage: UNK

REACTIONS (5)
  - Panic reaction [Unknown]
  - Social avoidant behaviour [Unknown]
  - Drug ineffective [Unknown]
  - Nausea [Unknown]
  - Vomiting [Unknown]
